FAERS Safety Report 4819610-2 (Version None)
Quarter: 2005Q4

REPORT INFORMATION
  Report Type: 
  Country: None (occurrence: None)
  Receive Date: 20051102
  Receipt Date: 20051026
  Transmission Date: 20060501
  Serious: Yes (Other)
  Sender: FDA-Public Use
  Company Number: USA-2005-0021686

PATIENT
  Age: 81 Year
  Sex: Female

DRUGS (3)
  1. OXYCONTIN [Suspect]
     Indication: PAIN
     Dosage: 10 MG; 20 MG; 40 MG
     Dates: start: 20051020, end: 20051024
  2. OXYCONTIN [Suspect]
     Indication: PAIN
     Dosage: 10 MG; 20 MG; 40 MG
     Dates: start: 20050609
  3. OXYCONTIN [Suspect]
     Indication: PAIN
     Dosage: 10 MG; 20 MG; 40 MG
     Dates: start: 20050808

REACTIONS (5)
  - HALLUCINATION [None]
  - METASTASES TO LIVER [None]
  - NIGHTMARE [None]
  - PARANOIA [None]
  - SLEEP WALKING [None]
